FAERS Safety Report 11748482 (Version 2)
Quarter: 2015Q4

REPORT INFORMATION
  Report Type: Report from Study
  Country: US (occurrence: US)
  Receive Date: 20151117
  Receipt Date: 20151201
  Transmission Date: 20160304
  Serious: Yes (Other)
  Sender: FDA-Public Use
  Company Number: US-B.I. PHARMACEUTICALS,INC./RIDGEFIELD-2014-BI-40160BI

PATIENT
  Age: 96 Year
  Sex: Female

DRUGS (1)
  1. GILOTRIF [Suspect]
     Active Substance: AFATINIB
     Indication: LUNG NEOPLASM MALIGNANT
     Dosage: 20 MG
     Route: 048
     Dates: start: 20140808, end: 201510

REACTIONS (5)
  - Diarrhoea [Unknown]
  - Hallucination [Unknown]
  - Intestinal perforation [Unknown]
  - Gastric ulcer [Unknown]
  - Hyponatraemia [Unknown]

NARRATIVE: CASE EVENT DATE: 20140827
